FAERS Safety Report 16156515 (Version 1)
Quarter: 2019Q2

REPORT INFORMATION
  Report Type: Spontaneous
  Country: TH (occurrence: TH)
  Receive Date: 20190404
  Receipt Date: 20190404
  Transmission Date: 20190711
  Serious: Yes (Hospitalization)
  Sender: FDA-Public Use
  Company Number: TH-JNJFOC-20190331833

PATIENT
  Age: 20 Year
  Sex: Female
  Weight: 40 kg

DRUGS (2)
  1. PARACETAMOL [Suspect]
     Active Substance: ACETAMINOPHEN
     Route: 065
  2. PARACETAMOL [Suspect]
     Active Substance: ACETAMINOPHEN
     Indication: PRODUCT USED FOR UNKNOWN INDICATION
     Dosage: TOOK 30 TABLETS OF PARACETAMOL
     Route: 065

REACTIONS (10)
  - Protein total increased [Unknown]
  - Asthenia [Unknown]
  - Aspartate aminotransferase increased [Unknown]
  - Blood bilirubin increased [Unknown]
  - Bilirubin conjugated increased [Unknown]
  - Blood albumin increased [Unknown]
  - Alanine aminotransferase increased [Unknown]
  - Overdose [Unknown]
  - Vomiting [Unknown]
  - Nausea [Unknown]
